FAERS Safety Report 5417503-3 (Version None)
Quarter: 2007Q3

REPORT INFORMATION
  Report Type: 
  Country: None (occurrence: None)
  Receive Date: 20070718
  Receipt Date: 20070503
  Transmission Date: 20080115
  Serious: Yes (Death, Other)
  Sender: FDA-Public Use
  Company Number: 2007035604

PATIENT
  Age: 72 Year
  Sex: Female
  Weight: 81.2 kg

DRUGS (1)
  1. CELEBREX [Suspect]
     Indication: PAIN
     Dosage: 10 MG (10 MG, 1 IN 1 D)
     Dates: start: 20031217, end: 20040303

REACTIONS (1)
  - MYOCARDIAL INFARCTION [None]
